FAERS Safety Report 16249214 (Version 2)
Quarter: 2019Q2

REPORT INFORMATION
  Report Type: Report from Study
  Country: None (occurrence: BR)
  Receive Date: 20190429
  Receipt Date: 20190430
  Transmission Date: 20190711
  Serious: Yes (Disabling, Other)
  Sender: FDA-Public Use
  Company Number: BR-ABBVIE-18K-020-2572214-00

PATIENT
  Sex: Female
  Weight: 89 kg

DRUGS (5)
  1. HUMIRA [Suspect]
     Active Substance: ADALIMUMAB
     Indication: RHEUMATOID ARTHRITIS
     Route: 058
     Dates: start: 20170602, end: 20181112
  2. HUMIRA [Suspect]
     Active Substance: ADALIMUMAB
     Route: 058
     Dates: end: 201903
  3. HUMIRA [Suspect]
     Active Substance: ADALIMUMAB
     Route: 058
     Dates: start: 2019
  4. METHOTREXATE. [Suspect]
     Active Substance: METHOTREXATE
     Indication: PRODUCT USED FOR UNKNOWN INDICATION
     Route: 065
  5. HUMIRA [Suspect]
     Active Substance: ADALIMUMAB
     Route: 058
     Dates: start: 2018, end: 2018

REACTIONS (16)
  - Renal colic [Recovering/Resolving]
  - Fear [Unknown]
  - Dry eye [Unknown]
  - Eye pruritus [Unknown]
  - Osteoarthritis [Unknown]
  - Gait disturbance [Unknown]
  - Pain in extremity [Unknown]
  - Pain [Unknown]
  - Blindness [Recovering/Resolving]
  - Cataract [Unknown]
  - Asthenia [Unknown]
  - Injection site pain [Recovered/Resolved]
  - Arthralgia [Unknown]
  - Visual impairment [Not Recovered/Not Resolved]
  - Eye infection bacterial [Unknown]
  - Nausea [Unknown]

NARRATIVE: CASE EVENT DATE: 2017
